FAERS Safety Report 8177615-0 (Version None)
Quarter: 2012Q1

REPORT INFORMATION
  Report Type: 
  Country: None (occurrence: None)
  Receive Date: 20120301
  Receipt Date: 20120220
  Transmission Date: 20120608
  Serious: Yes (Other)
  Sender: FDA-Public Use
  Company Number: PHFR2011GB006748

PATIENT
  Sex: Female

DRUGS (7)
  1. CLOZARIL [Suspect]
     Route: 048
     Dates: start: 20111020
  2. PERINDOPRIL ERBUMINE [Concomitant]
     Indication: BLOOD PRESSURE
     Dosage: 8 MG, DAILY
     Route: 048
  3. ACETAMINOPHEN AND CODEINE PHOSPHATE [Concomitant]
     Indication: ARTHRITIS
     Dosage: 8 MG+500 MG FOUR TIMES IN A DAY
     Route: 048
  4. FELODIPINE [Concomitant]
     Indication: BLOOD PRESSURE
     Dosage: 10 MG, DAILY
     Route: 048
  5. SIMVASTATIN [Concomitant]
     Indication: BLOOD CHOLESTEROL
     Dosage: 40 MG, DAILY
     Route: 048
  6. CLOZARIL [Suspect]
     Indication: SCHIZOPHRENIA
     Route: 048
     Dates: start: 20111102
  7. ASPIRIN [Concomitant]
     Indication: ANTIPLATELET THERAPY
     Dosage: 75 MG, DAILY
     Route: 048

REACTIONS (10)
  - FALL [None]
  - MALAISE [None]
  - FATIGUE [None]
  - GAIT DISTURBANCE [None]
  - PARKINSONISM [None]
  - LETHARGY [None]
  - EXTRAPYRAMIDAL DISORDER [None]
  - SOMNOLENCE [None]
  - DIZZINESS [None]
  - POSTURE ABNORMAL [None]
